FAERS Safety Report 6913070-3 (Version None)
Quarter: 2010Q3

REPORT INFORMATION
  Report Type: 
  Country: None (occurrence: None)
  Receive Date: 20100806
  Receipt Date: 20090624
  Transmission Date: 20110219
  Serious: Yes (Other)
  Sender: FDA-Public Use
  Company Number: US-PFIZER INC-2009193216

PATIENT
  Age: 77 Year
  Sex: Female

DRUGS (1)
  1. DETROL [Suspect]

REACTIONS (2)
  - MICTURITION URGENCY [None]
  - URINARY RETENTION [None]
